FAERS Safety Report 12373514 (Version 3)
Quarter: 2016Q3

REPORT INFORMATION
  Report Type: Spontaneous
  Country: JP (occurrence: JP)
  Receive Date: 20160516
  Receipt Date: 20160809
  Transmission Date: 20161109
  Serious: Yes (Hospitalization, Other)
  Sender: FDA-Public Use
  Company Number: JP-AMGEN-JPNSP2015141081

PATIENT
  Age: 14 Year
  Sex: Female
  Weight: 52 kg

DRUGS (67)
  1. COSMEGEN [Concomitant]
     Active Substance: DACTINOMYCIN
     Dosage: 2.3 MG, UNK
     Route: 042
     Dates: start: 20151117
  2. ONCOVIN [Concomitant]
     Active Substance: VINCRISTINE SULFATE
     Indication: NEPHROBLASTOMA
     Dosage: 2 MG, UNK
     Route: 042
     Dates: start: 20150712
  3. GRANISETRON [Concomitant]
     Active Substance: GRANISETRON
     Dosage: 2.2 MG, QD
     Route: 042
     Dates: start: 20150721, end: 20150721
  4. GRANISETRON [Concomitant]
     Active Substance: GRANISETRON
     Dosage: 2 MG, QD
     Route: 042
     Dates: start: 20150811, end: 20150811
  5. PICOSULFATE NA [Concomitant]
     Dosage: 10 GTT, UNK
     Route: 048
     Dates: start: 20150715
  6. CARBOCISTEINE [Concomitant]
     Active Substance: CARBOCYSTEINE
     Dosage: 500 MG, TID
     Route: 048
     Dates: start: 20150920, end: 20151005
  7. EMEND [Concomitant]
     Active Substance: APREPITANT
     Dosage: 1 DF, UNK
     Route: 048
     Dates: start: 20151117, end: 20151117
  8. COSMEGEN [Concomitant]
     Active Substance: DACTINOMYCIN
     Indication: NEPHROBLASTOMA
     Dosage: 2.3 MG, UNK
     Route: 042
     Dates: start: 20150710
  9. COSMEGEN [Concomitant]
     Active Substance: DACTINOMYCIN
     Dosage: 2.3 MG, UNK
     Route: 042
     Dates: start: 20151026
  10. ONCOVIN [Concomitant]
     Active Substance: VINCRISTINE SULFATE
     Dosage: 2 MG, UNK
     Route: 042
     Dates: start: 20150817
  11. ONCOVIN [Concomitant]
     Active Substance: VINCRISTINE SULFATE
     Dosage: 2 MG, UNK
     Route: 042
     Dates: start: 20150824
  12. GRANISETRON [Concomitant]
     Active Substance: GRANISETRON
     Dosage: 2.2 MG, QD
     Route: 042
     Dates: start: 20150710, end: 20150712
  13. GRANISETRON [Concomitant]
     Active Substance: GRANISETRON
     Dosage: 2.2 MG, BID
     Route: 042
     Dates: start: 20151026, end: 20151028
  14. PRIMPERAN [Concomitant]
     Active Substance: METOCLOPRAMIDE HYDROCHLORIDE
     Dosage: 10 MG, BID
     Route: 042
     Dates: start: 20151007, end: 20151007
  15. DEXART [Concomitant]
     Active Substance: DEXAMETHASONE SODIUM PHOSPHATE
     Dosage: 3.3 MG, QD
     Route: 042
     Dates: start: 20151005, end: 20151005
  16. ATARAX-P [Concomitant]
     Active Substance: HYDROXYZINE HYDROCHLORIDE
     Dosage: 25 MG, QD
     Route: 042
     Dates: start: 20151026, end: 20151026
  17. MEROPEN                            /01250501/ [Concomitant]
     Active Substance: MEROPENEM
     Dosage: 1.0 G, TID
     Route: 042
     Dates: start: 20150908, end: 20150911
  18. SULFAMETHOXAZOLE AND TRIMETHOPRIM [Concomitant]
     Active Substance: SULFAMETHOXAZOLE\TRIMETHOPRIM
     Dosage: 0.5 G BID, 3 TIMES/WK
     Route: 048
     Dates: start: 20150828, end: 20160205
  19. FERROUS CITRATE NA [Concomitant]
     Active Substance: SODIUM FERROUS CITRATE
     Dosage: 50 MG, BID
     Route: 048
     Dates: start: 20150912, end: 20151127
  20. ONCOVIN [Concomitant]
     Active Substance: VINCRISTINE SULFATE
     Dosage: 2 MG, UNK
     Route: 042
     Dates: start: 20150720
  21. ONCOVIN [Concomitant]
     Active Substance: VINCRISTINE SULFATE
     Dosage: 2 MG, UNK
     Route: 042
     Dates: start: 20150803
  22. GRANISETRON [Concomitant]
     Active Substance: GRANISETRON
     Dosage: 2.2 MG, BID
     Route: 042
     Dates: start: 20150720, end: 20150720
  23. GRANISETRON [Concomitant]
     Active Substance: GRANISETRON
     Dosage: 2 MG, BID
     Route: 042
     Dates: start: 20150810, end: 20150810
  24. GRANISETRON [Concomitant]
     Active Substance: GRANISETRON
     Dosage: 2.2 MG, BID
     Route: 042
     Dates: start: 20150831, end: 20150831
  25. GRANISETRON [Concomitant]
     Active Substance: GRANISETRON
     Dosage: 2.2 MG, BID
     Route: 042
     Dates: start: 20151117, end: 20151118
  26. DEXART [Concomitant]
     Active Substance: DEXAMETHASONE SODIUM PHOSPHATE
     Dosage: 3.3 MG, QD
     Route: 042
     Dates: start: 20150824, end: 20150824
  27. G-LASTA [Suspect]
     Active Substance: PEGFILGRASTIM
     Indication: BONE MARROW FAILURE
     Dosage: 3.6 MG, QD
     Route: 058
     Dates: start: 20151006
  28. COSMEGEN [Concomitant]
     Active Substance: DACTINOMYCIN
     Dosage: 2.3 MG, UNK
     Route: 042
     Dates: start: 20150914
  29. ONCOVIN [Concomitant]
     Active Substance: VINCRISTINE SULFATE
     Dosage: 2 MG, UNK
     Route: 042
     Dates: start: 20151005
  30. ONCOVIN [Concomitant]
     Active Substance: VINCRISTINE SULFATE
     Dosage: 2 MG, UNK
     Route: 042
     Dates: start: 20151026
  31. PRIMPERAN [Concomitant]
     Active Substance: METOCLOPRAMIDE HYDROCHLORIDE
     Dosage: 10 MG, QD
     Route: 042
     Dates: start: 20150713, end: 20150713
  32. TRANSAMIN [Concomitant]
     Active Substance: TRANEXAMIC ACID
     Dosage: 250 MG, TID
     Route: 048
     Dates: start: 20150714, end: 20150719
  33. SULBACILLIN [Concomitant]
     Active Substance: AMPICILLIN SODIUM\SULBACTAM SODIUM
     Dosage: 1.5 G, BID
     Route: 042
     Dates: start: 20150728, end: 20150729
  34. NEUTROGIN [Concomitant]
     Active Substance: LENOGRASTIM
     Dosage: 250 MUG, QD
     Route: 042
     Dates: start: 20150908, end: 20150911
  35. COSMEGEN [Concomitant]
     Active Substance: DACTINOMYCIN
     Dosage: 2.3 MG, UNK
     Route: 042
     Dates: start: 20151005
  36. GRANISETRON [Concomitant]
     Active Substance: GRANISETRON
     Dosage: 2 MG, BID
     Route: 042
     Dates: start: 20150817, end: 20150817
  37. GRANISETRON [Concomitant]
     Active Substance: GRANISETRON
     Dosage: 2.2 MG, QD
     Route: 042
     Dates: start: 20151029, end: 20151029
  38. NEUTROGIN [Concomitant]
     Active Substance: LENOGRASTIM
     Dosage: 250 MUG, QD
     Route: 042
     Dates: start: 20150818, end: 20150823
  39. MEROPEN                            /01250501/ [Concomitant]
     Active Substance: MEROPENEM
     Dosage: 1 G, TID
     Route: 042
     Dates: start: 20150818, end: 20150823
  40. MYCOSYST [Concomitant]
     Active Substance: FLUCONAZOLE
     Dosage: 200 MG, QD
     Route: 048
     Dates: start: 20150909, end: 20160205
  41. GASTER [Concomitant]
     Active Substance: FAMOTIDINE
     Dosage: 20 MG, BID
     Route: 042
     Dates: start: 20151007, end: 20151011
  42. EMEND [Concomitant]
     Active Substance: APREPITANT
     Dosage: 1 DF, QD
     Route: 048
     Dates: start: 20151026, end: 20151026
  43. COSMEGEN [Concomitant]
     Active Substance: DACTINOMYCIN
     Dosage: 2.3 MG, UNK
     Route: 042
     Dates: start: 20150803
  44. ONCOVIN [Concomitant]
     Active Substance: VINCRISTINE SULFATE
     Dosage: 2 MG, UNK
     Route: 042
     Dates: start: 20150810
  45. ONCOVIN [Concomitant]
     Active Substance: VINCRISTINE SULFATE
     Dosage: 2 MG, UNK
     Route: 042
     Dates: start: 20150831
  46. ONCOVIN [Concomitant]
     Active Substance: VINCRISTINE SULFATE
     Dosage: 2 MG, UNK
     Route: 042
     Dates: start: 20150907
  47. ONCOVIN [Concomitant]
     Active Substance: VINCRISTINE SULFATE
     Dosage: 2 MG, UNK
     Route: 042
     Dates: start: 20151117
  48. GRANISETRON [Concomitant]
     Active Substance: GRANISETRON
     Dosage: 2.2 MG, BID
     Route: 042
     Dates: start: 20150803, end: 20150803
  49. GRANISETRON [Concomitant]
     Active Substance: GRANISETRON
     Dosage: 2 MG, QD
     Route: 042
     Dates: start: 20150818, end: 20150818
  50. GRANISETRON [Concomitant]
     Active Substance: GRANISETRON
     Dosage: 2.2 MG, BID
     Route: 042
     Dates: start: 20150824, end: 20150826
  51. PRIMPERAN [Concomitant]
     Active Substance: METOCLOPRAMIDE HYDROCHLORIDE
     Dosage: 10 MG, BID
     Route: 042
     Dates: start: 20150804, end: 20150804
  52. DEXART [Concomitant]
     Active Substance: DEXAMETHASONE SODIUM PHOSPHATE
     Dosage: 3.3 MG, QD
     Route: 042
     Dates: start: 20150803, end: 20150803
  53. DEXART [Concomitant]
     Active Substance: DEXAMETHASONE SODIUM PHOSPHATE
     Dosage: 3.3 MG, QD
     Route: 042
     Dates: start: 20151117, end: 20151118
  54. COSMEGEN [Concomitant]
     Active Substance: DACTINOMYCIN
     Dosage: 2.3 MG, UNK
     Route: 042
     Dates: start: 20150824
  55. ONCOVIN [Concomitant]
     Active Substance: VINCRISTINE SULFATE
     Dosage: 2 MG, UNK
     Route: 042
     Dates: start: 20150921
  56. GRANISETRON [Concomitant]
     Active Substance: GRANISETRON
     Dosage: 2.2 MG, QD
     Route: 042
     Dates: start: 20150907, end: 20150907
  57. GRANISETRON [Concomitant]
     Active Substance: GRANISETRON
     Dosage: 2.2 MG, BID
     Route: 042
     Dates: start: 20151005, end: 20151006
  58. GRANISETRON [Concomitant]
     Active Substance: GRANISETRON
     Dosage: 2.2 MG, QD
     Route: 042
     Dates: start: 20151119, end: 20151119
  59. METHYCOBAL [Concomitant]
     Active Substance: METHYLCOBALAMIN
     Dosage: 500 MUG, TID
     Route: 048
     Dates: start: 20151117, end: 20160425
  60. ONCOVIN [Concomitant]
     Active Substance: VINCRISTINE SULFATE
     Dosage: 2 MG, UNK
     Route: 042
     Dates: start: 20150914
  61. GRANISETRON [Concomitant]
     Active Substance: GRANISETRON
     Dosage: 2.2 MG, QD
     Route: 042
     Dates: start: 20150804, end: 20150805
  62. GRANISETRON [Concomitant]
     Active Substance: GRANISETRON
     Dosage: 2.2 MG, BID
     Route: 042
     Dates: start: 20150914, end: 20150915
  63. GRANISETRON [Concomitant]
     Active Substance: GRANISETRON
     Dosage: 2.2 MG, QD
     Route: 042
     Dates: start: 20150916, end: 20150916
  64. DEXART [Concomitant]
     Active Substance: DEXAMETHASONE SODIUM PHOSPHATE
     Dosage: 3.3 MG, QD
     Route: 042
     Dates: start: 20150914, end: 20150914
  65. ATARAX-P [Concomitant]
     Active Substance: HYDROXYZINE HYDROCHLORIDE
     Dosage: 25 MG, QD
     Route: 042
     Dates: start: 20150804, end: 20150805
  66. MEROPEN                            /01250501/ [Concomitant]
     Active Substance: MEROPENEM
     Dosage: 1.0 G, TID
     Route: 042
     Dates: start: 20151001, end: 20151003
  67. MEROPEN                            /01250501/ [Concomitant]
     Active Substance: MEROPENEM
     Dosage: 1.0 G, TID
     Route: 042
     Dates: start: 20151115, end: 20151116

REACTIONS (1)
  - Platelet count decreased [Recovered/Resolved]

NARRATIVE: CASE EVENT DATE: 20151011
